FAERS Safety Report 12272477 (Version 1)
Quarter: 2016Q2

REPORT INFORMATION
  Report Type: Spontaneous
  Country: FR (occurrence: FR)
  Receive Date: 20160415
  Receipt Date: 20160415
  Transmission Date: 20160815
  Serious: Yes (Other)
  Sender: FDA-Public Use
  Company Number: FR-TEVA-651677ISR

PATIENT
  Age: 86 Year
  Sex: Male

DRUGS (4)
  1. MOPRAL [Concomitant]
     Active Substance: OMEPRAZOLE SODIUM
  2. XELEVIA [Concomitant]
     Active Substance: SITAGLIPTIN PHOSPHATE
  3. ADENURIC [Concomitant]
     Active Substance: FEBUXOSTAT
  4. VERAPAMIL [Suspect]
     Active Substance: VERAPAMIL HYDROCHLORIDE
     Indication: TACHYCARDIA
     Dosage: 2 DOSAGE FORMS DAILY; STARTED APPROXIMATELY 1 MONTH AGO
     Route: 048
     Dates: start: 2016

REACTIONS (1)
  - Hallucination, visual [Not Recovered/Not Resolved]
